FAERS Safety Report 18211608 (Version 1)
Quarter: 2020Q3

REPORT INFORMATION
  Report Type: Report from Study
  Country: US (occurrence: US)
  Receive Date: 20200831
  Receipt Date: 20200831
  Transmission Date: 20201103
  Serious: Yes (Other)
  Sender: FDA-Public Use
  Company Number: US-ASTRAZENECA-2019SE46244

PATIENT
  Age: 11 Year
  Sex: Male
  Weight: 32.9 kg

DRUGS (1)
  1. AZD6244 [Suspect]
     Active Substance: SELUMETINIB
     Indication: NEUROFIBROMATOSIS
     Dosage: TWO TIMES A DAY (BSA ADJUSTED)
     Route: 048
     Dates: start: 20181220, end: 20200702

REACTIONS (3)
  - Dysarthria [Unknown]
  - Muscular weakness [Recovered/Resolved]
  - Personality change [Recovered/Resolved]

NARRATIVE: CASE EVENT DATE: 20190301
